FAERS Safety Report 8228210-6 (Version None)
Quarter: 2012Q1

REPORT INFORMATION
  Report Type: 
  Country: None (occurrence: None)
  Receive Date: 20120322
  Receipt Date: 20111206
  Transmission Date: 20120608
  Serious: No
  Sender: FDA-Public Use
  Company Number: US-BRISTOL-MYERS SQUIBB COMPANY-16273278

PATIENT
  Age: 50 Year
  Sex: Male
  Weight: 91 kg

DRUGS (9)
  1. SIMVASTATIN [Concomitant]
  2. RAMIPRIL [Concomitant]
     Indication: BLOOD PRESSURE
  3. SEROQUEL [Concomitant]
     Indication: DEPRESSION
  4. FOLIC ACID [Concomitant]
  5. DIGOXIN [Concomitant]
  6. CARVEDILOL [Concomitant]
  7. ERBITUX [Suspect]
     Indication: COLORECTAL CANCER METASTATIC
     Dosage: 2ND INF:30NOV2011
     Dates: start: 20111101
  8. PHENOBARBITAL TAB [Concomitant]
     Indication: CONVULSION
     Dosage: FROM 30YEARS AGO
  9. DILANTIN [Concomitant]

REACTIONS (2)
  - RASH [None]
  - PRURITUS [None]
